FAERS Safety Report 5601206-6 (Version None)
Quarter: 2008Q1

REPORT INFORMATION
  Report Type: 
  Country: None (occurrence: None)
  Receive Date: 20080118
  Receipt Date: 20080109
  Transmission Date: 20080703
  Serious: Yes (Death)
  Sender: FDA-Public Use
  Company Number: 2007-03789

PATIENT
  Age: 70 Year
  Sex: Male
  Weight: 81.5 kg

DRUGS (5)
  1. VELCADE [Suspect]
     Indication: MULTIPLE MYELOMA
     Dates: end: 20070511
  2. ADRIAMYCIN(DOXORUBICIN) ADRIAMYCIN(DOXORUBICIN) VIAL [Suspect]
     Indication: MULTIPLE MYELOMA
  3. DEXAMETHASONE TAB [Suspect]
     Indication: MULTIPLE MYELOMA
  4. GABAPENTIN [Concomitant]
  5. ZOMETA [Concomitant]

REACTIONS (2)
  - COLITIS [None]
  - MULTIPLE MYELOMA [None]
